FAERS Safety Report 10095747 (Version 2)
Quarter: 2014Q2

REPORT INFORMATION
  Report Type: Spontaneous
  Country: US (occurrence: US)
  Receive Date: 20140422
  Receipt Date: 20140422
  Transmission Date: 20141212
  Serious: No
  Sender: FDA-Public Use
  Company Number: US-GILEAD-2013-0073702

PATIENT
  Sex: Male

DRUGS (3)
  1. LETAIRIS [Suspect]
     Indication: PULMONARY HYPOPLASIA
     Dosage: 5 MG, QD
     Route: 048
     Dates: start: 20130220
  2. REVATIO [Concomitant]
  3. REMODULIN [Concomitant]

REACTIONS (1)
  - Hepatic enzyme increased [Unknown]
